FAERS Safety Report 5060015-X (Version None)
Quarter: 2006Q3

REPORT INFORMATION
  Report Type: 
  Country: None (occurrence: None)
  Receive Date: 20060719
  Receipt Date: 20060712
  Transmission Date: 20061208
  Serious: Yes (Other)
  Sender: FDA-Public Use
  Company Number: 227355

PATIENT
  Age: 44 Year
  Sex: Male

DRUGS (4)
  1. ERLOTINIB (ERLOTINIB) TABLET [Suspect]
     Indication: NEOPLASM MALIGNANT
     Dosage: 100 MG, QD, ORAL
     Route: 048
     Dates: start: 20051201, end: 20060114
  2. BEVACIZUMAB(BEVACIZUMAB) PWDR + SOLVENT,INFUSION SOLN, 100MG [Suspect]
     Indication: NEOPLASM MALIGNANT
     Dosage: 10 MG/M2, Q14D, INTRAVENOUS
     Route: 042
     Dates: start: 20051114, end: 20060109
  3. CISPLATIN [Concomitant]
  4. RADIATION (RADIATION THERAPY) [Concomitant]

REACTIONS (3)
  - DYSPHAGIA [None]
  - MUCOSAL INFLAMMATION [None]
  - WEIGHT DECREASED [None]
